FAERS Safety Report 18542605 (Version 4)
Quarter: 2021Q3

REPORT INFORMATION
  Report Type: Other
  Country: CA (occurrence: CA)
  Receive Date: 20201125
  Receipt Date: 20210725
  Transmission Date: 20211014
  Serious: Yes (Other)
  Sender: FDA-Public Use
  Company Number: CA-CELLTRION INC.-2020CA032050

PATIENT

DRUGS (16)
  1. ACETAMINOPHEN. [Concomitant]
     Active Substance: ACETAMINOPHEN
     Indication: PREMEDICATION
     Dosage: 650 MILLIGRAM
     Route: 048
  2. DOCOSAHEXAENOIC ACID/EICOSAPENTAENOIC ACID [Suspect]
     Active Substance: DOCONEXENT\ICOSAPENT
  3. METHYLPREDNISOLONE. [Concomitant]
     Active Substance: METHYLPREDNISOLONE
     Indication: PREMEDICATION
     Dosage: 100 MILLIGRAM
     Route: 042
  4. WELLBUTRIN [Concomitant]
     Active Substance: BUPROPION HYDROCHLORIDE
  5. DIPHENHYDRAMINE HYDROCHLORIDE. [Concomitant]
     Active Substance: DIPHENHYDRAMINE HYDROCHLORIDE
     Indication: PREMEDICATION
     Dosage: 50 MILLIGRAM
     Route: 048
  6. GLICLAZIDE [Concomitant]
     Active Substance: GLICLAZIDE
  7. BUPROPION. [Concomitant]
     Active Substance: BUPROPION
     Indication: EX-TOBACCO USER
  8. VITAMIN C [Concomitant]
     Active Substance: ASCORBIC ACID
  9. CHLORTHALIDONE. [Concomitant]
     Active Substance: CHLORTHALIDONE
  10. CINNAMON. [Concomitant]
     Active Substance: CINNAMON
     Route: 065
  11. TYLENOL [Concomitant]
     Active Substance: ACETAMINOPHEN
  12. INSULIN [Concomitant]
     Active Substance: INSULIN NOS
  13. JANUVIA [Concomitant]
     Active Substance: SITAGLIPTIN PHOSPHATE
     Route: 048
  14. RITUXIMAB (UNKNOWN) [Suspect]
     Active Substance: RITUXIMAB
     Indication: RHEUMATOID ARTHRITIS
     Dosage: 1000 MILLIGRAM
     Route: 042
  15. RAMIPRIL. [Concomitant]
     Active Substance: RAMIPRIL
  16. TRANDOLAPRIL. [Concomitant]
     Active Substance: TRANDOLAPRIL

REACTIONS (11)
  - Arthralgia [Recovered/Resolved]
  - Eye disorder [Recovered/Resolved]
  - Burning sensation [Recovered/Resolved]
  - Lymphoma [Recovered/Resolved]
  - C-reactive protein increased [Recovered/Resolved]
  - Vomiting [Recovered/Resolved]
  - Bell^s palsy [Recovered/Resolved]
  - Joint swelling [Recovered/Resolved]
  - Weight increased [Recovered/Resolved]
  - Arthropathy [Recovered/Resolved]
  - Pain in extremity [Recovered/Resolved]
